FAERS Safety Report 8608474 (Version 2)
Quarter: 2012Q4

REPORT INFORMATION
  Report Type: 
  Country: GB (occurrence: GB)
  Receive Date: 20120611
  Receipt Date: 20120912
  Transmission Date: 20130627
  Serious: Yes (Death, Other)
  Sender: FDA-Public Use
  Company Number: GB-ROCHE-1076771

PATIENT

DRUGS (5)
  1. MABTHERA [Suspect]
     Indication: DIFFUSE LARGE B-CELL LYMPHOMA
     Route: 042
  2. GEMCITABINE HYDROCHLORIDE [Suspect]
     Indication: DIFFUSE LARGE B-CELL LYMPHOMA
     Dosage: Dose: 750-1000 mg/sqm
     Route: 042
  3. CYCLOPHOSPHAMIDE [Suspect]
     Indication: DIFFUSE LARGE B-CELL LYMPHOMA
     Route: 042
  4. PREDNISOLONE [Suspect]
     Indication: DIFFUSE LARGE B-CELL LYMPHOMA
     Route: 048
  5. VINCRISTINE [Suspect]
     Indication: DIFFUSE LARGE B-CELL LYMPHOMA
     Route: 042

REACTIONS (2)
  - Infection [Fatal]
  - Haematotoxicity [Unknown]
